FAERS Safety Report 12736528 (Version 2)
Quarter: 2016Q3

REPORT INFORMATION
  Report Type: Spontaneous
  Country: US (occurrence: US)
  Receive Date: 20160912
  Receipt Date: 20160921
  Transmission Date: 20161109
  Serious: No
  Sender: FDA-Public Use
  Company Number: US-BAYER-2016-177029

PATIENT
  Age: 85 Year
  Sex: Female
  Weight: 56 kg

DRUGS (13)
  1. KLONOPIN [Concomitant]
     Active Substance: CLONAZEPAM
  2. LEXAPRO [Concomitant]
     Active Substance: ESCITALOPRAM OXALATE
  3. REMERON [Concomitant]
     Active Substance: MIRTAZAPINE
  4. NORVASC [Concomitant]
     Active Substance: AMLODIPINE BESYLATE
  5. ZYRTEC [Concomitant]
     Active Substance: CETIRIZINE HYDROCHLORIDE
  6. COUMADIN [Concomitant]
     Active Substance: WARFARIN SODIUM
  7. DIOVAN [Concomitant]
     Active Substance: VALSARTAN
  8. B12-VITAMIIN [Concomitant]
  9. NEURONTIN [Concomitant]
     Active Substance: GABAPENTIN
  10. SEROQUEL [Concomitant]
     Active Substance: QUETIAPINE FUMARATE
  11. PRILOSEC [Concomitant]
     Active Substance: OMEPRAZOLE MAGNESIUM
  12. MIRALAX [Suspect]
     Active Substance: POLYETHYLENE GLYCOL 3350
  13. KLOR-CON [Concomitant]
     Active Substance: POTASSIUM CHLORIDE

REACTIONS (2)
  - Flatulence [None]
  - Product use issue [None]
